FAERS Safety Report 5792292-1 (Version None)
Quarter: 2008Q2

REPORT INFORMATION
  Report Type: 
  Country: None (occurrence: None)
  Receive Date: 20080626
  Receipt Date: 20080312
  Transmission Date: 20081010
  Serious: No
  Sender: FDA-Public Use
  Company Number: US-ASTRAZENECA-2008UW05025

PATIENT
  Age: 2 Year
  Sex: Male
  Weight: 15.4 kg

DRUGS (4)
  1. PULMICORT RESPULES [Suspect]
     Route: 055
  2. AMOXIL [Concomitant]
  3. PREVACID [Concomitant]
  4. ALBUTEROL [Concomitant]

REACTIONS (2)
  - INSOMNIA [None]
  - PSYCHOMOTOR HYPERACTIVITY [None]
